FAERS Safety Report 9033638 (Version 1)
Quarter: 2013Q1

REPORT INFORMATION
  Report Type: Spontaneous
  Country: US (occurrence: US)
  Receive Date: 20130128
  Receipt Date: 20130128
  Transmission Date: 20140127
  Serious: Yes (Other)
  Sender: FDA-Public Use
  Company Number: US-AMGEN-USASP2012080454

PATIENT
  Age: 14 Year
  Sex: Male
  Weight: 63.49 kg

DRUGS (1)
  1. ENBREL [Suspect]
     Indication: JUVENILE IDIOPATHIC ARTHRITIS
     Dosage: 50 MG, QWK
     Route: 058
     Dates: start: 201205

REACTIONS (4)
  - Depression [Unknown]
  - Anxiety [Unknown]
  - Constipation [Unknown]
  - Peripheral coldness [Unknown]
